FAERS Safety Report 6860209-4 (Version None)
Quarter: 2010Q3

REPORT INFORMATION
  Report Type: 
  Country: None (occurrence: None)
  Receive Date: 20100720
  Receipt Date: 20100708
  Transmission Date: 20110219
  Serious: Yes (Other)
  Sender: FDA-Public Use
  Company Number: ES-CELGENEUS-144-21880-10070658

PATIENT

DRUGS (4)
  1. REVLIMID [Suspect]
     Indication: MULTIPLE MYELOMA
     Route: 048
  2. REVLIMID [Suspect]
     Route: 048
  3. REVLIMID [Suspect]
     Route: 048
  4. DEXAMETHASONE [Suspect]
     Indication: MULTIPLE MYELOMA
     Route: 065

REACTIONS (8)
  - ANAEMIA [None]
  - ASTHENIA [None]
  - DEEP VEIN THROMBOSIS [None]
  - DELIRIUM [None]
  - DIARRHOEA [None]
  - GASTROINTESTINAL HAEMORRHAGE [None]
  - GLAUCOMA [None]
  - INFECTION [None]
